FAERS Safety Report 5247543-9 (Version None)
Quarter: 2007Q1

REPORT INFORMATION
  Report Type: 
  Country: None (occurrence: None)
  Receive Date: 20070227
  Receipt Date: 20070214
  Transmission Date: 20070707
  Serious: Yes (Other)
  Sender: FDA-Public Use
  Company Number: PHBS2007NZ02950

PATIENT
  Age: 17 Year
  Sex: Male

DRUGS (2)
  1. DIAZEPAM [Concomitant]
     Indication: ANXIETY
     Dosage: LOW DOSE
  2. CLOZARIL [Suspect]
     Dosage: 150 MG, BID
     Dates: end: 20070213

REACTIONS (6)
  - ELECTROCARDIOGRAM Q WAVE ABNORMAL [None]
  - ELECTROCARDIOGRAM REPOLARISATION ABNORMALITY [None]
  - HEADACHE [None]
  - HEART RATE IRREGULAR [None]
  - PYREXIA [None]
  - TACHYCARDIA [None]
